FAERS Safety Report 10348064 (Version 1)
Quarter: 2014Q3

REPORT INFORMATION
  Report Type: Spontaneous
  Country: US (occurrence: None)
  Receive Date: 20140723
  Receipt Date: 20140723
  Transmission Date: 20150326
  Serious: Yes (Hospitalization)
  Sender: FDA-Public Use
  Company Number: NSR_01589_2014

PATIENT
  Age: 58 Year
  Sex: Female
  Weight: 75.3 kg

DRUGS (1)
  1. ALLOPURINOL. [Suspect]
     Active Substance: ALLOPURINOL
     Indication: GOUT
     Dosage: NIGHTLY
     Route: 048
     Dates: start: 201405, end: 201406

REACTIONS (6)
  - Vomiting [None]
  - Ageusia [None]
  - Diarrhoea [None]
  - Rash generalised [None]
  - Dry skin [None]
  - Pruritus generalised [None]

NARRATIVE: CASE EVENT DATE: 201405
